FAERS Safety Report 18139170 (Version 3)
Quarter: 2021Q3

REPORT INFORMATION
  Report Type: Report from Study
  Country: US (occurrence: US)
  Receive Date: 20200812
  Receipt Date: 20210728
  Transmission Date: 20211014
  Serious: No
  Sender: FDA-Public Use
  Company Number: NVSC2020US223493

PATIENT
  Sex: Female

DRUGS (3)
  1. MAYZENT [Suspect]
     Active Substance: SIPONIMOD
     Indication: PRODUCT USED FOR UNKNOWN INDICATION
     Dosage: 0.25 MG, OTHER
     Route: 048
     Dates: start: 202006
  2. MAYZENT [Suspect]
     Active Substance: SIPONIMOD
     Dosage: 2 MG, QD
     Route: 048
     Dates: start: 202006
  3. MAYZENT [Suspect]
     Active Substance: SIPONIMOD
     Dosage: 2 MG, QD
     Route: 048

REACTIONS (3)
  - Product dose omission issue [Unknown]
  - Visual impairment [Unknown]
  - Headache [Unknown]
